FAERS Safety Report 9406909 (Version 2)
Quarter: 2013Q4

REPORT INFORMATION
  Report Type: Spontaneous
  Country: US (occurrence: US)
  Receive Date: 20130718
  Receipt Date: 20131126
  Transmission Date: 20140711
  Serious: Yes (Other)
  Sender: FDA-Public Use
  Company Number: US-PFIZER INC-2013207616

PATIENT
  Age: 71 Year
  Sex: Male
  Weight: 132.88 kg

DRUGS (7)
  1. SUTENT [Suspect]
     Indication: METASTATIC RENAL CELL CARCINOMA
     Dosage: 50 MG, UNK
  2. SUTENT [Suspect]
     Dosage: 37.5 MG, CYCLIC (DAILY 4 WEEKS ON AND 2 WEEKS OFF)
     Dates: start: 201210
  3. HYDROCODONE [Concomitant]
     Dosage: UNK
  4. LOSARTAN [Concomitant]
     Dosage: UNK
  5. VITAMIN D [Concomitant]
     Dosage: UNK
  6. CALCIUM [Concomitant]
     Dosage: UNK
  7. LASIX [Concomitant]
     Dosage: UNK

REACTIONS (9)
  - Infected skin ulcer [Unknown]
  - Dyspepsia [Unknown]
  - Vomiting [Unknown]
  - Limb discomfort [Unknown]
  - Skin ulcer [Unknown]
  - Pain in extremity [Unknown]
  - Weight decreased [Recovering/Resolving]
  - Decreased appetite [Unknown]
  - Diarrhoea [Unknown]
